FAERS Safety Report 4948419-4 (Version None)
Quarter: 2006Q1

REPORT INFORMATION
  Report Type: 
  Country: None (occurrence: None)
  Receive Date: 20060313
  Receipt Date: 20060223
  Transmission Date: 20060701
  Serious: Yes (Other)
  Sender: FDA-Public Use
  Company Number: 13305

PATIENT
  Age: 62 Year
  Sex: Male
  Weight: 83 kg

DRUGS (6)
  1. FLUOROURACIL [Suspect]
     Indication: BILIARY NEOPLASM
     Dosage: 375 MG/M2 DAILY; IV
     Route: 042
     Dates: start: 20050502, end: 20051223
  2. FLUOROURACIL [Suspect]
     Indication: BILIARY NEOPLASM
     Dosage: NI
     Dates: start: 20060123
  3. LEUCOVORIN [Suspect]
     Indication: BILIARY NEOPLASM
     Dosage: 25 MG/M2 DAILY, IV
     Route: 042
     Dates: start: 20050502, end: 20051223
  4. LEUCOVORIN [Suspect]
     Indication: BILIARY NEOPLASM
     Dosage: NI
     Dates: start: 20051223
  5. METFORMIN HYDROCHLORIDE [Concomitant]
  6. INSULIN HUMAN [Concomitant]

REACTIONS (1)
  - NEUTROPENIA [None]
